FAERS Safety Report 6997641-4 (Version None)
Quarter: 2010Q3

REPORT INFORMATION
  Report Type: 
  Country: None (occurrence: None)
  Receive Date: 20100918
  Receipt Date: 20091119
  Transmission Date: 20110219
  Serious: No
  Sender: FDA-Public Use
  Company Number: US-WYE-H12225209

PATIENT
  Age: 73 Year
  Sex: Female

DRUGS (7)
  1. PRISTIQ [Suspect]
     Indication: DEPRESSION
     Route: 048
     Dates: start: 20091026
  2. PRISTIQ [Suspect]
     Indication: ANXIETY
  3. CRESTOR [Concomitant]
  4. PANTOPRAZOLE [Concomitant]
  5. CELEBREX [Concomitant]
  6. ALPRAZOLAM [Concomitant]
  7. DICYCLOMINE HYDROCHLORIDE [Concomitant]

REACTIONS (1)
  - DRUG INEFFECTIVE [None]
